FAERS Safety Report 4448401-X (Version None)
Quarter: 2004Q3

REPORT INFORMATION
  Report Type: 
  Country: None (occurrence: None)
  Receive Date: 20040730
  Receipt Date: 20040210
  Transmission Date: 20050211
  Serious: Yes (Hospitalization)
  Sender: FDA-Public Use
  Company Number: 2004-02-0997

PATIENT
  Sex: Male

DRUGS (1)
  1. INTERFERON INJECTABLE [Suspect]
     Indication: HEPATITIS C

REACTIONS (2)
  - DEPRESSION [None]
  - SUICIDAL IDEATION [None]
